FAERS Safety Report 20120985 (Version 31)
Quarter: 2024Q1

REPORT INFORMATION
  Report Type: Spontaneous
  Country: CA (occurrence: CA)
  Receive Date: 20211127
  Receipt Date: 20240222
  Transmission Date: 20240410
  Serious: Yes (Hospitalization, Other)
  Sender: FDA-Public Use
  Company Number: CA-CELLTRION INC.-2021CA016095

PATIENT

DRUGS (66)
  1. INFLECTRA [Suspect]
     Active Substance: INFLIXIMAB-DYYB
     Indication: Psoriatic arthropathy
     Dosage: 400 MG, Q 0, 2, 6 THEN EVERY 8 WEEKS
     Route: 042
     Dates: start: 20211001
  2. INFLECTRA [Suspect]
     Active Substance: INFLIXIMAB-DYYB
     Dosage: 400 MG, 0, 2, 6 THEN EVERY 8 WEEKS
     Route: 042
     Dates: start: 20211018
  3. INFLECTRA [Suspect]
     Active Substance: INFLIXIMAB-DYYB
     Dosage: 400 MG, 0, 2, 6 THEN EVERY 8 WEEKS
     Route: 042
     Dates: start: 20211117
  4. INFLECTRA [Suspect]
     Active Substance: INFLIXIMAB-DYYB
     Dosage: 400 MG, 0, 2, 6 THEN EVERY 8 WEEKS
     Route: 042
     Dates: start: 20220107
  5. INFLECTRA [Suspect]
     Active Substance: INFLIXIMAB-DYYB
     Dosage: 400 MG, EVERY 6 WEEKS
     Route: 042
     Dates: start: 20220214
  6. INFLECTRA [Suspect]
     Active Substance: INFLIXIMAB-DYYB
     Dosage: 400 MG, EVERY 6 WEEKS
     Route: 042
     Dates: start: 20220328
  7. INFLECTRA [Suspect]
     Active Substance: INFLIXIMAB-DYYB
     Dosage: 400 MG, EVERY 6 WEEKS
     Route: 042
     Dates: start: 20220506
  8. INFLECTRA [Suspect]
     Active Substance: INFLIXIMAB-DYYB
     Dosage: 400 MG, EVERY 6 WEEKS
     Route: 042
     Dates: start: 20220617
  9. INFLECTRA [Suspect]
     Active Substance: INFLIXIMAB-DYYB
     Dosage: 400 MG, EVERY 4 WEEKS, 2 DOSES THEN BACK TO PREVIOUS REGIMEN
     Route: 042
     Dates: start: 20220715
  10. INFLECTRA [Suspect]
     Active Substance: INFLIXIMAB-DYYB
     Dosage: 400 MG, EVERY 4 WEEKS, 2 DOSES THEN BACK TO PREVIOUS REGIMEN
     Route: 042
     Dates: start: 20220812
  11. INFLECTRA [Suspect]
     Active Substance: INFLIXIMAB-DYYB
     Dosage: 400 MG, EVERY 6 WEEKS
     Route: 042
     Dates: start: 20220923
  12. INFLECTRA [Suspect]
     Active Substance: INFLIXIMAB-DYYB
     Dosage: 400 MG EVERY 6 WEEKS
     Route: 042
     Dates: start: 20221021
  13. INFLECTRA [Suspect]
     Active Substance: INFLIXIMAB-DYYB
     Dosage: 400 MG, EVERY 4 WEEKS
     Route: 042
     Dates: start: 20221121
  14. INFLECTRA [Suspect]
     Active Substance: INFLIXIMAB-DYYB
     Dosage: 400 MG, EVERY 4 WEEKS
     Route: 042
     Dates: start: 20221219
  15. INFLECTRA [Suspect]
     Active Substance: INFLIXIMAB-DYYB
     Dosage: 400 MG, EVERY 4 WEEKS
     Route: 042
     Dates: start: 20230505
  16. INFLECTRA [Suspect]
     Active Substance: INFLIXIMAB-DYYB
     Dosage: 400 MG, EVERY 4 WEEKS
     Route: 042
     Dates: start: 20230602
  17. INFLECTRA [Suspect]
     Active Substance: INFLIXIMAB-DYYB
     Dosage: 400 MG, EVERY 4 WEEKS
     Route: 042
     Dates: start: 20230825
  18. INFLECTRA [Suspect]
     Active Substance: INFLIXIMAB-DYYB
     Dosage: 400 MG, AFTER 4 WEEKS AND 3 DAYS (SUPPOSE TO RECEIVE Q 4 WEEKS)
     Route: 042
     Dates: start: 20230925
  19. INFLECTRA [Suspect]
     Active Substance: INFLIXIMAB-DYYB
     Dosage: 500 MG, EVERY 4 WEEKS
     Route: 042
     Dates: start: 20231023
  20. INFLECTRA [Suspect]
     Active Substance: INFLIXIMAB-DYYB
     Dosage: 500 MG, EVERY 4 WEEKS
     Route: 042
     Dates: start: 20231117
  21. INFLECTRA [Suspect]
     Active Substance: INFLIXIMAB-DYYB
     Dosage: 500 MG, EVERY 4 WEEKS
     Route: 042
     Dates: start: 20231117
  22. INFLECTRA [Suspect]
     Active Substance: INFLIXIMAB-DYYB
     Dosage: 500 MG, EVERY 4 WEEKS
     Route: 042
     Dates: start: 20231215
  23. INFLECTRA [Suspect]
     Active Substance: INFLIXIMAB-DYYB
     Dosage: 500 MG, EVERY 4 WEEKS (AFTER 4 WEEKS AND 5 DAYS)
     Route: 042
     Dates: start: 20240117
  24. INFLECTRA [Suspect]
     Active Substance: INFLIXIMAB-DYYB
     Dosage: 500 MG, EVERY 4 WEEKS (AFTER 4 WEEKS)
     Route: 042
     Dates: start: 20240214
  25. ACETAMINOPHEN [Concomitant]
     Active Substance: ACETAMINOPHEN
     Indication: Premedication
     Dosage: UNK
  26. ACETAMINOPHEN [Concomitant]
     Active Substance: ACETAMINOPHEN
     Dosage: 650 MG
     Route: 048
     Dates: start: 20221219, end: 20221219
  27. FOLIC ACID [Concomitant]
     Active Substance: FOLIC ACID
     Dosage: 5 MG, 5 DAYS PER WEEK
  28. BENADRYL [Concomitant]
     Active Substance: DIPHENHYDRAMINE HYDROCHLORIDE
     Indication: Premedication
     Dosage: UNK
     Dates: start: 20240117, end: 20240117
  29. CIPROFLOXACIN [Concomitant]
     Active Substance: CIPROFLOXACIN
     Indication: Urinary tract infection
     Dosage: 1 DF, DOSAGE NOT AVAILABLE
     Route: 065
  30. CIPROFLOXACIN [Concomitant]
     Active Substance: CIPROFLOXACIN
     Indication: Pyelonephritis
  31. LINACLOTIDE [Concomitant]
     Active Substance: LINACLOTIDE
     Dosage: 145 MG, EVERY 2 DAYS ALTERNATING
  32. LINACLOTIDE [Concomitant]
     Active Substance: LINACLOTIDE
     Dosage: 290 UG, EVERY 2 DAYS ALTERNATING
  33. DIMENHYDRINATE [Concomitant]
     Active Substance: DIMENHYDRINATE
     Dosage: 50 MG, AS NEEDED
  34. DIPHENHYDRAMINE [Concomitant]
     Active Substance: DIPHENHYDRAMINE
     Indication: Premedication
     Dosage: UNK
  35. DIPHENHYDRAMINE [Concomitant]
     Active Substance: DIPHENHYDRAMINE
     Dosage: 50 MG
     Route: 048
     Dates: start: 20221219, end: 20221219
  36. DILAUDID [Concomitant]
     Active Substance: HYDROMORPHONE HYDROCHLORIDE
     Dosage: 2 MG, AS NEEDED
  37. DOCUSATE SODIUM [Concomitant]
     Active Substance: DOCUSATE SODIUM
     Dosage: 400 MG
  38. ESTRADIOL [Concomitant]
     Active Substance: ESTRADIOL
     Dosage: 2 MG
  39. ESOMEPRAZOLE [Concomitant]
     Active Substance: ESOMEPRAZOLE
     Dosage: 40 MG, AS NEEDED
  40. FERROUS SULFATE [Concomitant]
     Active Substance: FERROUS SULFATE
     Dosage: 1 DF, DOSAGE NOT AVAILABLE
     Route: 065
  41. CEFIXIME [Concomitant]
     Active Substance: CEFIXIME
     Dosage: 10 MG, AS NEEDED
  42. FLUTICASONE [Concomitant]
     Active Substance: FLUTICASONE
     Dosage: 125 UG
  43. FOLIC ACID [Concomitant]
     Active Substance: FOLIC ACID
     Dosage: 1 DF, DOSAGE NOT AVALIABLE
     Route: 065
  44. FOLIC ACID [Concomitant]
     Active Substance: FOLIC ACID
     Dosage: 5 MG, 5 DAYS PER WEEK
     Route: 065
  45. LACTULOSE [Concomitant]
     Active Substance: LACTULOSE
     Dosage: 667 MG/ML
  46. LACTULOSE [Concomitant]
     Active Substance: LACTULOSE
     Dosage: 15 ML, AS NEEDED
  47. LORAZEPAM [Concomitant]
     Active Substance: LORAZEPAM
     Dosage: 2 MG
  48. M PEG 3350 [Concomitant]
     Dosage: 17 G, AS NEEDED
  49. METHOTREXATE [Concomitant]
     Active Substance: METHOTREXATE
     Dosage: 12.5 MG, METHOTREXATE PLAQ
  50. NEUPRO [Concomitant]
     Active Substance: ROTIGOTINE
     Dosage: 4 MG, 24H TIMBRE
  51. NEUPRO [Concomitant]
     Active Substance: ROTIGOTINE
     Dosage: 125 MG,FLOVENT SOUS LE TIMBRE DE
  52. NITROFURANTOIN [Concomitant]
     Active Substance: NITROFURANTOIN
     Dosage: 1 DF, DOSAGE NOT AVAILABLE
     Route: 065
  53. PIROXICAM [Concomitant]
     Active Substance: PIROXICAM
     Dosage: 1 DF, DOSAGE NOT AVAILABLE
     Route: 065
  54. RIZATRIPTAN [Concomitant]
     Active Substance: RIZATRIPTAN
     Dosage: 5 MG RDT
  55. ROPINIROLE [Concomitant]
     Active Substance: ROPINIROLE
     Dosage: 1 MG
  56. SULFASALAZINE [Concomitant]
     Active Substance: SULFASALAZINE
     Dosage: 1 G, 2X/DAY
     Route: 065
  57. SEROQUEL [Concomitant]
     Active Substance: QUETIAPINE FUMARATE
     Dosage: 25 MG, AS NEEDED
  58. TYLENOL [Concomitant]
     Active Substance: ACETAMINOPHEN
     Dosage: AS NEEDED
  59. VITAMIN B12 [Concomitant]
     Active Substance: CYANOCOBALAMIN
     Dosage: 1 DF, DOSAGE NOT AVAILABLE
     Route: 065
  60. VITAMIN B12 [Concomitant]
     Active Substance: CYANOCOBALAMIN
     Dosage: 1200 UG
     Route: 065
  61. CHOLECALCIFEROL [Concomitant]
     Active Substance: CHOLECALCIFEROL
     Dosage: 1 DF, DOSAGE NOT AVAILABLE
     Route: 065
  62. CHOLECALCIFEROL [Concomitant]
     Active Substance: CHOLECALCIFEROL
     Dosage: UNK, Q2WEEKS
     Route: 065
  63. VALACYCLOVIR [Concomitant]
     Active Substance: VALACYCLOVIR HYDROCHLORIDE
     Dosage: 1 DF, DOSAGE NOT AVAILABLE
     Route: 065
  64. VALACYCLOVIR [Concomitant]
     Active Substance: VALACYCLOVIR HYDROCHLORIDE
     Dosage: 500 MG
     Route: 065
  65. ZOLOFT [Concomitant]
     Active Substance: SERTRALINE HYDROCHLORIDE
     Dosage: 175 MG
  66. CORTEF ACETATE [Concomitant]
     Active Substance: HYDROCORTISONE ACETATE

REACTIONS (40)
  - Renal failure [Recovering/Resolving]
  - Benign breast neoplasm [Not Recovered/Not Resolved]
  - Adrenal insufficiency [Not Recovered/Not Resolved]
  - Condition aggravated [Not Recovered/Not Resolved]
  - Syncope [Unknown]
  - Urinary tract infection bacterial [Unknown]
  - Sinusitis bacterial [Recovered/Resolved]
  - Back pain [Not Recovered/Not Resolved]
  - Mental impairment [Not Recovered/Not Resolved]
  - Fatigue [Not Recovered/Not Resolved]
  - Hot flush [Unknown]
  - Middle insomnia [Unknown]
  - Weight decreased [Not Recovered/Not Resolved]
  - Decreased appetite [Not Recovered/Not Resolved]
  - Erythema [Unknown]
  - Insomnia [Unknown]
  - Blood pressure decreased [Recovered/Resolved]
  - Cortisol increased [Unknown]
  - Neoplasm [Unknown]
  - COVID-19 [Recovered/Resolved]
  - Asthenia [Recovered/Resolved]
  - Tremor [Recovered/Resolved]
  - Blood pressure increased [Unknown]
  - Vaginal infection [Recovered/Resolved]
  - Mammary duct ectasia [Not Recovered/Not Resolved]
  - Headache [Unknown]
  - Abdominal pain [Recovered/Resolved]
  - Condition aggravated [Not Recovered/Not Resolved]
  - Hypoglycaemia [Unknown]
  - Speech disorder [Not Recovered/Not Resolved]
  - COVID-19 [Recovered/Resolved]
  - Asthenia [Not Recovered/Not Resolved]
  - Somnolence [Not Recovered/Not Resolved]
  - Therapeutic response shortened [Unknown]
  - Therapeutic product effect delayed [Unknown]
  - Intentional product use issue [Unknown]
  - Inappropriate schedule of product administration [Unknown]
  - Off label use [Unknown]
  - Off label use [Unknown]
  - Off label use [Unknown]

NARRATIVE: CASE EVENT DATE: 20210101
